FAERS Safety Report 20499127 (Version 1)
Quarter: 2022Q1

REPORT INFORMATION
  Report Type: Spontaneous
  Country: BR (occurrence: BR)
  Receive Date: 20220222
  Receipt Date: 20220222
  Transmission Date: 20220423
  Serious: Yes (Hospitalization, Other)
  Sender: FDA-Public Use
  Company Number: BR-ALLERGAN-2205548US

PATIENT
  Sex: Male

DRUGS (4)
  1. MESALAMINE [Interacting]
     Active Substance: MESALAMINE
     Indication: Colitis ulcerative
     Route: 048
  2. MESALAMINE [Interacting]
     Active Substance: MESALAMINE
     Indication: Colitis ulcerative
     Route: 054
  3. CORTICOSTEROID NOS [Interacting]
     Active Substance: CORTICOSTEROID NOS
     Indication: Colitis ulcerative
     Route: 042
  4. AZATHIOPRINE [Interacting]
     Active Substance: AZATHIOPRINE
     Indication: Colitis ulcerative

REACTIONS (2)
  - Cytomegalovirus colitis [Recovering/Resolving]
  - Drug interaction [Unknown]
